FAERS Safety Report 5608100-5 (Version None)
Quarter: 2008Q1

REPORT INFORMATION
  Report Type: 
  Country: None (occurrence: None)
  Receive Date: 20080125
  Receipt Date: 20080115
  Transmission Date: 20080703
  Serious: Yes (Other)
  Sender: FDA-Public Use
  Company Number: 2008AP000209

PATIENT
  Age: 27 Year
  Sex: Female

DRUGS (16)
  1. PAROXETINE HCL [Suspect]
     Indication: ANXIETY
     Dosage: PO, 20 MG; PO; QD, 20 MG; PO; QD, 15 MG; PO; QD, 10 MG; PO; QD, 5 MG; PO; QD, SYR
     Route: 048
     Dates: end: 20040801
  2. PAROXETINE HCL [Suspect]
     Indication: DEPRESSION
     Dosage: PO, 20 MG; PO; QD, 20 MG; PO; QD, 15 MG; PO; QD, 10 MG; PO; QD, 5 MG; PO; QD, SYR
     Route: 048
     Dates: end: 20040801
  3. PAROXETINE HCL [Suspect]
     Indication: ANXIETY
     Dosage: PO, 20 MG; PO; QD, 20 MG; PO; QD, 15 MG; PO; QD, 10 MG; PO; QD, 5 MG; PO; QD, SYR
     Route: 048
     Dates: start: 19970301
  4. PAROXETINE HCL [Suspect]
     Indication: DEPRESSION
     Dosage: PO, 20 MG; PO; QD, 20 MG; PO; QD, 15 MG; PO; QD, 10 MG; PO; QD, 5 MG; PO; QD, SYR
     Route: 048
     Dates: start: 19970301
  5. PAROXETINE HCL [Suspect]
     Indication: ANXIETY
     Dosage: PO, 20 MG; PO; QD, 20 MG; PO; QD, 15 MG; PO; QD, 10 MG; PO; QD, 5 MG; PO; QD, SYR
     Route: 048
     Dates: start: 20010227
  6. PAROXETINE HCL [Suspect]
     Indication: DEPRESSION
     Dosage: PO, 20 MG; PO; QD, 20 MG; PO; QD, 15 MG; PO; QD, 10 MG; PO; QD, 5 MG; PO; QD, SYR
     Route: 048
     Dates: start: 20010227
  7. PAROXETINE HCL [Suspect]
     Indication: ANXIETY
     Dosage: PO, 20 MG; PO; QD, 20 MG; PO; QD, 15 MG; PO; QD, 10 MG; PO; QD, 5 MG; PO; QD, SYR
     Route: 048
     Dates: start: 20040817
  8. PAROXETINE HCL [Suspect]
     Indication: DEPRESSION
     Dosage: PO, 20 MG; PO; QD, 20 MG; PO; QD, 15 MG; PO; QD, 10 MG; PO; QD, 5 MG; PO; QD, SYR
     Route: 048
     Dates: start: 20040817
  9. PAROXETINE HCL [Suspect]
     Indication: ANXIETY
     Dosage: PO, 20 MG; PO; QD, 20 MG; PO; QD, 15 MG; PO; QD, 10 MG; PO; QD, 5 MG; PO; QD, SYR
     Route: 048
     Dates: start: 20040824
  10. PAROXETINE HCL [Suspect]
     Indication: DEPRESSION
     Dosage: PO, 20 MG; PO; QD, 20 MG; PO; QD, 15 MG; PO; QD, 10 MG; PO; QD, 5 MG; PO; QD, SYR
     Route: 048
     Dates: start: 20040824
  11. DIAZEPAM [Concomitant]
  12. MIRTAZAPINE [Concomitant]
  13. FLUOXETINE HCL [Concomitant]
  14. ESCITALOPRAM OXALATE [Concomitant]
  15. DIAZEPAM [Concomitant]
  16. CITALOPRAM HYDROBROMIDE [Concomitant]

REACTIONS (10)
  - AGORAPHOBIA [None]
  - DIARRHOEA [None]
  - DISTURBANCE IN ATTENTION [None]
  - HYPERHIDROSIS [None]
  - INFLUENZA [None]
  - MEMORY IMPAIRMENT [None]
  - PANIC ATTACK [None]
  - SUICIDAL IDEATION [None]
  - WEIGHT DECREASED [None]
  - WITHDRAWAL SYNDROME [None]
